FAERS Safety Report 5562920-4 (Version None)
Quarter: 2007Q4

REPORT INFORMATION
  Report Type: 
  Country: None (occurrence: None)
  Receive Date: 20071211
  Receipt Date: 20071211
  Transmission Date: 20080405
  Serious: Yes (Other)
  Sender: FDA-Public Use
  Company Number: None

PATIENT
  Age: 55 Year
  Sex: Male
  Weight: 77.1115 kg

DRUGS (1)
  1. VYTORIN [Suspect]
     Indication: BLOOD CHOLESTEROL INCREASED
     Dosage: 10/40 MG DAILY PO
     Route: 048
     Dates: start: 20051207, end: 20070806

REACTIONS (3)
  - NO THERAPEUTIC RESPONSE [None]
  - TOOTH DEPOSIT [None]
  - TOOTH DISCOLOURATION [None]
